FAERS Safety Report 20523501 (Version 1)
Quarter: 2022Q1

REPORT INFORMATION
  Report Type: Spontaneous
  Country: CA (occurrence: None)
  Receive Date: 20220228
  Receipt Date: 20220228
  Transmission Date: 20220423
  Serious: Yes (Other)
  Sender: FDA-Public Use
  Company Number: CA-ROCHE-3035835

PATIENT
  Sex: Female
  Weight: 85 kg

DRUGS (6)
  1. RITUXIMAB [Suspect]
     Active Substance: RITUXIMAB
     Indication: Rheumatoid arthritis
     Route: 041
  2. CANNABIDIOL [Concomitant]
     Active Substance: CANNABIDIOL
  3. HYDROXYCHLOROQUINE SULFATE [Concomitant]
     Active Substance: HYDROXYCHLOROQUINE SULFATE
  4. LEFLUNOMIDE [Concomitant]
     Active Substance: LEFLUNOMIDE
  5. TRAMADOL [Concomitant]
     Active Substance: TRAMADOL
  6. VISTITAN [Concomitant]

REACTIONS (3)
  - Hypothyroidism [Unknown]
  - Off label use [Unknown]
  - Thyroid cancer [Unknown]
